FAERS Safety Report 9775401 (Version 1)
Quarter: 2013Q4

REPORT INFORMATION
  Report Type: Spontaneous
  Country: US (occurrence: US)
  Receive Date: 20131220
  Receipt Date: 20131220
  Transmission Date: 20140711
  Serious: No
  Sender: FDA-Public Use
  Company Number: US-GALDERMA-US13003364

PATIENT
  Age: 35 Year
  Sex: Male

DRUGS (8)
  1. MIRVASO [Suspect]
     Indication: ROSACEA
     Dosage: 0.33%
     Route: 061
     Dates: start: 20130926, end: 201310
  2. MIRVASO [Suspect]
     Indication: ROSACEA
     Dosage: 0.33%
     Route: 061
     Dates: start: 201310, end: 20131015
  3. ALLEGRA (FEXOFENADINE) [Concomitant]
  4. WELLBUTRIN (BUPROPION) [Concomitant]
  5. NASOCORT (TRIAMCINOLONE ACETONIDE) [Concomitant]
  6. ACIPHEX (RABEPRAZOLE) [Concomitant]
  7. DIOVAN (VALSARTAN) [Concomitant]
  8. METROGEL  (METRONIDAZOLE) GEL, 1% [Concomitant]
     Indication: ROSACEA
     Dosage: 1%
     Route: 061
     Dates: start: 201305

REACTIONS (4)
  - Condition aggravated [Unknown]
  - Erythema [Unknown]
  - Flushing [Unknown]
  - Drug ineffective [Unknown]
